FAERS Safety Report 20876922 (Version 1)
Quarter: 2022Q2

REPORT INFORMATION
  Report Type: Spontaneous
  Country: US (occurrence: US)
  Receive Date: 20220526
  Receipt Date: 20220526
  Transmission Date: 20220721
  Serious: No
  Sender: FDA-Public Use
  Company Number: US-TEVA-2022-US-2036087

PATIENT
  Age: 61 Year
  Sex: Female
  Weight: 106 kg

DRUGS (1)
  1. AUSTEDO [Suspect]
     Active Substance: DEUTETRABENAZINE
     Indication: Dyskinesia
     Dosage: 12 MILLIGRAM DAILY;
     Route: 048

REACTIONS (3)
  - Tremor [Unknown]
  - Drooling [Unknown]
  - Nausea [Unknown]

NARRATIVE: CASE EVENT DATE: 20220401
